FAERS Safety Report 11302767 (Version 1)
Quarter: 2015Q3

REPORT INFORMATION
  Report Type: Other
  Country: FR (occurrence: FR)
  Receive Date: 20150723
  Receipt Date: 20150723
  Transmission Date: 20151125
  Serious: Yes (Hospitalization)
  Sender: FDA-Public Use
  Company Number: FR-ASTELLAS-2015US026124

PATIENT
  Age: 57 Year
  Sex: Male

DRUGS (4)
  1. LASILIX                            /00032601/ [Suspect]
     Active Substance: FUROSEMIDE
     Indication: HYPERTENSION
     Dosage: UNK, UNKNOWN FREQ.
     Route: 065
     Dates: end: 20150609
  2. TACROLIMUS. [Interacting]
     Active Substance: TACROLIMUS
     Indication: PROPHYLAXIS AGAINST TRANSPLANT REJECTION
     Route: 048
  3. NICARDIPINE [Interacting]
     Active Substance: NICARDIPINE
     Indication: HYPERTENSION
     Dosage: 6 MG, EVERY HOUR.
     Route: 042
  4. CORDARONE [Concomitant]
     Active Substance: AMIODARONE HYDROCHLORIDE
     Indication: PRODUCT USED FOR UNKNOWN INDICATION
     Dosage: UNK UNK, UNKNOWN FREQ.
     Route: 065

REACTIONS (3)
  - Acute prerenal failure [Recovered/Resolved]
  - Overdose [Unknown]
  - Drug interaction [Unknown]

NARRATIVE: CASE EVENT DATE: 20150607
